FAERS Safety Report 9875060 (Version 3)
Quarter: 2015Q2

REPORT INFORMATION
  Report Type: Spontaneous
  Country: ES (occurrence: ES)
  Receive Date: 20140206
  Receipt Date: 20150420
  Transmission Date: 20150821
  Serious: Yes (Hospitalization)
  Sender: FDA-Public Use
  Company Number: PHHY2014ES013639

PATIENT
  Age: 7 Year
  Sex: Male

DRUGS (3)
  1. PREDNISONE. [Suspect]
     Active Substance: PREDNISONE
     Indication: DERMATITIS ATOPIC
     Dosage: 0.5 MG/KG, PER DAY
     Route: 048
  2. PREDNISONE. [Suspect]
     Active Substance: PREDNISONE
     Dosage: 2.5 MG, FOR EVERY FIVE DAYS
  3. CICLOSPORIN [Suspect]
     Active Substance: CYCLOSPORINE
     Indication: PRODUCT USED FOR UNKNOWN INDICATION
     Dosage: 3.5 MG/KG, QD
     Route: 048

REACTIONS (12)
  - Benign intracranial hypertension [Recovered/Resolved]
  - Back pain [Recovered/Resolved]
  - Nuchal rigidity [Recovered/Resolved]
  - Dermatitis atopic [Recovered/Resolved]
  - Optic discs blurred [Recovered/Resolved]
  - Vomiting projectile [Recovered/Resolved]
  - Neck pain [Recovered/Resolved]
  - Headache [Recovered/Resolved]
  - Vision blurred [Recovered/Resolved]
  - Papilloedema [Recovered/Resolved]
  - Drug level decreased [Recovered/Resolved]
  - Protein total decreased [Recovered/Resolved]
